FAERS Safety Report 16954250 (Version 1)
Quarter: 2019Q4

REPORT INFORMATION
  Report Type: Spontaneous
  Country: US (occurrence: US)
  Receive Date: 20191023
  Receipt Date: 20191023
  Transmission Date: 20200122
  Serious: No
  Sender: FDA-Public Use
  Company Number: US-ABBVIE-19S-163-2709678-00

PATIENT
  Sex: Female

DRUGS (3)
  1. LUPRON [Suspect]
     Active Substance: LEUPROLIDE ACETATE
     Indication: PRODUCT USED FOR UNKNOWN INDICATION
     Route: 050
     Dates: start: 201811
  2. ANASTROZOLE. [Suspect]
     Active Substance: ANASTROZOLE
     Indication: PRODUCT USED FOR UNKNOWN INDICATION
     Route: 065
     Dates: start: 20181115
  3. IBRANCE [Suspect]
     Active Substance: PALBOCICLIB
     Indication: BREAST CANCER METASTATIC
     Dosage: THERAPY: DAILY FOR 21 DAYS THEN 7 DAYS OFF
     Route: 048
     Dates: start: 20181203

REACTIONS (4)
  - Hot flush [Unknown]
  - Nausea [Not Recovered/Not Resolved]
  - Decreased appetite [Not Recovered/Not Resolved]
  - Fatigue [Unknown]
